FAERS Safety Report 8827477 (Version 2)
Quarter: 2012Q4

REPORT INFORMATION
  Report Type: 
  Country: CN (occurrence: CN)
  Receive Date: 20121008
  Receipt Date: 20121016
  Transmission Date: 20130627
  Serious: Yes (Hospitalization)
  Sender: FDA-Public Use
  Company Number: CN-JNJFOC-20121001046

PATIENT
  Age: 7 Year
  Sex: Male

DRUGS (4)
  1. CONCERTA [Suspect]
     Indication: HYPERKINESIA
     Route: 048
     Dates: start: 20120918
  2. LORATADINE [Concomitant]
     Indication: DERMATITIS ALLERGIC
     Route: 065
  3. METHYLPREDNISOLONE [Concomitant]
     Indication: DERMATITIS ALLERGIC
     Route: 065
  4. VITAMINE C [Concomitant]
     Indication: DERMATITIS ALLERGIC
     Route: 065

REACTIONS (2)
  - Pain [Not Recovered/Not Resolved]
  - Henoch-Schonlein purpura [Unknown]
